FAERS Safety Report 8771630 (Version 1)
Quarter: 2012Q4

REPORT INFORMATION
  Report Type: 
  Country: DE (occurrence: DE)
  Receive Date: 20120905
  Receipt Date: 20120905
  Transmission Date: 20130627
  Serious: Yes (Hospitalization)
  Sender: FDA-Public Use
  Company Number: DE-ROCHE-1114774

PATIENT
  Age: 58 Year
  Sex: Female

DRUGS (5)
  1. RIBAVIRIN [Suspect]
     Indication: HEPATITIS C
     Route: 065
     Dates: start: 2005
  2. RIBAVIRIN [Suspect]
     Route: 065
  3. PEGYLATED INTERFERON NOS [Suspect]
     Indication: HEPATITIS C
     Route: 065
     Dates: start: 2005
  4. PEGINTERFERON ALFA-2B [Suspect]
     Indication: HEPATITIS C
     Route: 065
  5. BOCEPREVIR [Suspect]
     Indication: HEPATITIS C

REACTIONS (7)
  - Vomiting [Unknown]
  - Diarrhoea [Not Recovered/Not Resolved]
  - Dehydration [Unknown]
  - Flatulence [Not Recovered/Not Resolved]
  - Pain [Not Recovered/Not Resolved]
  - Fatigue [Not Recovered/Not Resolved]
  - Hepatitis C [Unknown]
